FAERS Safety Report 21247432 (Version 1)
Quarter: 2022Q3

REPORT INFORMATION
  Report Type: Spontaneous
  Country: US (occurrence: US)
  Receive Date: 20220824
  Receipt Date: 20220824
  Transmission Date: 20221027
  Serious: No
  Sender: FDA-Public Use
  Company Number: US-PFIZER INC-PV202200048735

PATIENT
  Age: 42 Year
  Sex: Female

DRUGS (2)
  1. IBRANCE [Interacting]
     Active Substance: PALBOCICLIB
     Indication: Bone cancer
     Dosage: 125 MG
  2. XGEVA [Interacting]
     Active Substance: DENOSUMAB
     Dosage: UNK

REACTIONS (2)
  - Off label use [Unknown]
  - Potentiating drug interaction [Unknown]
